FAERS Safety Report 7437012-X (Version None)
Quarter: 2011Q2

REPORT INFORMATION
  Report Type: 
  Country: None (occurrence: None)
  Receive Date: 20110426
  Receipt Date: 20110420
  Transmission Date: 20111010
  Serious: Yes (Hospitalization)
  Sender: FDA-Public Use
  Company Number: GB-MILLENNIUM PHARMACEUTICALS, INC.-2011-01677

PATIENT

DRUGS (1)
  1. VELCADE [Suspect]
     Indication: MANTLE CELL LYMPHOMA
     Dosage: UNK
     Dates: start: 20110211

REACTIONS (2)
  - CONSTIPATION [None]
  - PROCTALGIA [None]
